FAERS Safety Report 5029975-7 (Version None)
Quarter: 2006Q2

REPORT INFORMATION
  Report Type: 
  Country: None (occurrence: None)
  Receive Date: 20060614
  Receipt Date: 20060531
  Transmission Date: 20061013
  Serious: Yes (Death)
  Sender: FDA-Public Use
  Company Number: US-CVT-061195

PATIENT
  Sex: Female

DRUGS (9)
  1. RANEXA [Suspect]
     Indication: ANGINA PECTORIS
     Dosage: 500 MG, BID, ORAL
     Route: 048
     Dates: start: 20060418
  2. ASPIRIN [Concomitant]
  3. PLAVIX [Concomitant]
  4. IMDUR [Concomitant]
  5. ALU-CAP (ALUMINIUM HYDROXIDE GEL, DRIED) [Concomitant]
  6. LOPRESSOR [Concomitant]
  7. INFERAX (INTERFERON ALFACON-1) [Concomitant]
  8. SODIUM BICARBONATE IN PLASTIC CONTAINER [Concomitant]
  9. LESCOL /01224501/ (FLUVASTATIN) [Concomitant]

REACTIONS (1)
  - DEATH [None]
